FAERS Safety Report 21447680 (Version 1)
Quarter: 2022Q4

REPORT INFORMATION
  Report Type: Spontaneous
  Country: SA (occurrence: SA)
  Receive Date: 20221012
  Receipt Date: 20221012
  Transmission Date: 20230113
  Serious: Yes (Other)
  Sender: FDA-Public Use
  Company Number: SA-PFIZER INC-PV202200079227

PATIENT
  Age: 65 Year
  Sex: Female

DRUGS (2)
  1. XELJANZ XR [Suspect]
     Active Substance: TOFACITINIB CITRATE
     Dosage: 11 MG (11MG EVERY 3 DAYS)
     Route: 048
     Dates: start: 20220927
  2. XELJANZ XR [Suspect]
     Active Substance: TOFACITINIB CITRATE
     Dosage: 5 MG, (EVERY OTHER DAY)

REACTIONS (3)
  - Pulmonary fibrosis [Not Recovered/Not Resolved]
  - Product supply issue [Unknown]
  - Off label use [Unknown]
